FAERS Safety Report 18915453 (Version 1)
Quarter: 2021Q1

REPORT INFORMATION
  Report Type: Spontaneous
  Country: US (occurrence: US)
  Receive Date: 20210218
  Receipt Date: 20210218
  Transmission Date: 20210420
  Serious: Yes (Hospitalization)
  Sender: FDA-Public Use
  Company Number: None

PATIENT
  Age: 53 Year
  Sex: Female

DRUGS (1)
  1. AFINITOR [Suspect]
     Active Substance: EVEROLIMUS
     Route: 048
     Dates: start: 201902

REACTIONS (4)
  - Therapy interrupted [None]
  - Pneumonia [None]
  - SARS-CoV-2 test positive [None]
  - Lymphoedema [None]

NARRATIVE: CASE EVENT DATE: 20210209
